FAERS Safety Report 8101041-3 (Version None)
Quarter: 2012Q1

REPORT INFORMATION
  Report Type: 
  Country: None (occurrence: None)
  Receive Date: 20120129
  Receipt Date: 20111012
  Transmission Date: 20120608
  Serious: No
  Sender: FDA-Public Use
  Company Number: US-ABBOTT-11P-163-0863549-00

PATIENT
  Weight: 54.48 kg

DRUGS (4)
  1. METHOTREXATE [Concomitant]
     Indication: RHEUMATOID ARTHRITIS
  2. PLACQUENIL [Concomitant]
     Indication: RHEUMATOID ARTHRITIS
  3. IBUPROFEN [Concomitant]
     Indication: RHEUMATOID ARTHRITIS
  4. HUMIRA [Suspect]
     Indication: RHEUMATOID ARTHRITIS
     Dates: start: 20090901, end: 20110929

REACTIONS (2)
  - FEELING ABNORMAL [None]
  - DRUG DOSE OMISSION [None]
